FAERS Safety Report 8538829-0 (Version None)
Quarter: 2012Q3

REPORT INFORMATION
  Report Type: 
  Country: None (occurrence: None)
  Receive Date: 20120706
  Receipt Date: 20120626
  Transmission Date: 20120928
  Serious: Yes (Death, Life-Threatening, Hospitalization)
  Sender: FDA-Public Use
  Company Number: 2012PROUSA01462

PATIENT
  Age: 78 Year
  Sex: Male
  Weight: 102.5 kg

DRUGS (9)
  1. METFFORMIN HYDROCHLORIDE [Concomitant]
  2. CHOLECALCIFEROL (CHOLECALCIFEROL) [Concomitant]
  3. LANTUS [Concomitant]
  4. DOCUSATE CALCIUM (DOCUSATE CALCIUM) [Concomitant]
  5. PROVENGE [Suspect]
     Indication: PROSTATE CANCER METASTATIC
     Dosage: 250 ML, SINGLE, INTRAVENOUS
     Route: 042
     Dates: start: 20120330, end: 20120330
  6. FENTANYL [Concomitant]
  7. COUMADIN [Concomitant]
  8. MEGACE [Concomitant]
  9. PROMETHAZINE [Concomitant]

REACTIONS (15)
  - DISEASE PROGRESSION [None]
  - LUNG INFILTRATION [None]
  - TACHYCARDIA [None]
  - HYDRONEPHROSIS [None]
  - HYDROURETER [None]
  - DILATATION VENTRICULAR [None]
  - DEHYDRATION [None]
  - METASTASES TO ADRENALS [None]
  - RETROPERITONEAL NEOPLASM METASTATIC [None]
  - PROSTATE CANCER METASTATIC [None]
  - PLEURAL EFFUSION [None]
  - METASTASES TO BONE [None]
  - HEART RATE INCREASED [None]
  - RIB FRACTURE [None]
  - RIGHT VENTRICULAR DYSFUNCTION [None]
